FAERS Safety Report 9907370 (Version 1)
Quarter: 2014Q1

REPORT INFORMATION
  Report Type: Report from Study
  Country: CZ (occurrence: CZ)
  Receive Date: 20140218
  Receipt Date: 20140218
  Transmission Date: 20141002
  Serious: Yes (Hospitalization)
  Sender: FDA-Public Use
  Company Number: CZ-ABBVIE-14P-217-1199958-00

PATIENT
  Age: 46 Year
  Sex: Female

DRUGS (13)
  1. HUMIRA [Suspect]
     Indication: PSORIATIC ARTHROPATHY
     Route: 058
     Dates: start: 20110516, end: 20130331
  2. METOTREXATE [Concomitant]
     Indication: PRODUCT USED FOR UNKNOWN INDICATION
     Route: 058
  3. ACIDUM FOLICUM [Concomitant]
     Indication: PRODUCT USED FOR UNKNOWN INDICATION
     Route: 048
  4. MEDROL [Concomitant]
     Indication: PRODUCT USED FOR UNKNOWN INDICATION
  5. APO OME [Concomitant]
     Indication: PRODUCT USED FOR UNKNOWN INDICATION
  6. CHOLECALCIFEROL/CALCIUM (CALCICHEW D3) [Concomitant]
     Indication: PRODUCT USED FOR UNKNOWN INDICATION
     Route: 048
  7. LEVOTHYROXIN [Concomitant]
     Indication: PRODUCT USED FOR UNKNOWN INDICATION
  8. CALCITRIOL [Concomitant]
     Indication: PRODUCT USED FOR UNKNOWN INDICATION
  9. HIPRES [Concomitant]
     Indication: PRODUCT USED FOR UNKNOWN INDICATION
  10. ENAP [Concomitant]
     Indication: PRODUCT USED FOR UNKNOWN INDICATION
  11. ENALAPRIL/HYDROCHLOROTHIAZID (ENAP H) [Concomitant]
     Indication: PRODUCT USED FOR UNKNOWN INDICATION
  12. MOXONIDIN [Concomitant]
     Indication: PRODUCT USED FOR UNKNOWN INDICATION
  13. ITAKEM [Concomitant]
     Indication: PRODUCT USED FOR UNKNOWN INDICATION
     Route: 048

REACTIONS (1)
  - Goitre [Recovered/Resolved]
